FAERS Safety Report 5115788-4 (Version None)
Quarter: 2006Q3

REPORT INFORMATION
  Report Type: 
  Country: None (occurrence: None)
  Receive Date: 20060925
  Receipt Date: 20060908
  Transmission Date: 20061208
  Serious: Yes (Other)
  Sender: FDA-Public Use
  Company Number: 229694

PATIENT
  Age: 52 Year
  Sex: Female
  Weight: 61.7 kg

DRUGS (5)
  1. AVASTIN [Suspect]
     Indication: COLORECTAL CANCER METASTATIC
     Dosage: 350 MG, Q2W, INTRAVENOUS
     Route: 042
     Dates: start: 20040101
  2. FLUOROURACIL [Concomitant]
  3. OXALIPLATIN [Concomitant]
  4. LEUCOVORIN (LEUCOVORIN CALCIUM) [Concomitant]
  5. XELODA [Concomitant]

REACTIONS (3)
  - APHTHOUS STOMATITIS [None]
  - HERPES SIMPLEX [None]
  - IMPAIRED HEALING [None]
